FAERS Safety Report 8395141 (Version 7)
Quarter: 2012Q4

REPORT INFORMATION
  Report Type: Report from Study
  Country: BD (occurrence: BD)
  Receive Date: 20120208
  Receipt Date: 20120828
  Transmission Date: 20130627
  Serious: Yes (Disabling, Other)
  Sender: FDA-Public Use
  Company Number: BD-ASTELLAS-2012US001513

PATIENT
  Age: 11 Year
  Sex: Female
  Weight: 34 kg

DRUGS (2)
  1. AMBISOME [Suspect]
     Indication: VISCERAL LEISHMANIASIS
     Dosage: 30 mg/kg, Unknown/D
     Route: 065
     Dates: start: 20111221
  2. AMBISOME [Suspect]
     Dosage: 23 mg/kg, Unknown/D
     Route: 065
     Dates: start: 20101221

REACTIONS (1)
  - Rhabdomyolysis [Recovered/Resolved]
